FAERS Safety Report 23800612 (Version 2)
Quarter: 2024Q2

REPORT INFORMATION
  Report Type: Spontaneous
  Country: US (occurrence: US)
  Receive Date: 20240430
  Receipt Date: 20240506
  Transmission Date: 20240716
  Serious: Yes (Hospitalization, Disabling, Other)
  Sender: FDA-Public Use
  Company Number: US-NOVOPROD-1199724

PATIENT
  Sex: Female

DRUGS (1)
  1. LEVEMIR [Suspect]
     Active Substance: INSULIN DETEMIR
     Indication: Diabetes mellitus
     Dosage: TWICE A DAY(12 HOURS APART)
     Route: 058

REACTIONS (7)
  - Fall [Unknown]
  - Loss of consciousness [Unknown]
  - Fall [Unknown]
  - Blindness [Not Recovered/Not Resolved]
  - Lumbosacral plexopathy [Unknown]
  - Parkinson^s disease [Unknown]
  - Blood glucose increased [Unknown]

NARRATIVE: CASE EVENT DATE: 20210301
